FAERS Safety Report 5667849-9 (Version None)
Quarter: 2008Q1

REPORT INFORMATION
  Report Type: 
  Country: None (occurrence: None)
  Receive Date: 20080315
  Receipt Date: 20080205
  Transmission Date: 20080703
  Serious: No
  Sender: FDA-Public Use
  Company Number: US-ABBOTT-08P-163-0437123-00

PATIENT
  Sex: Male
  Weight: 86.26 kg

DRUGS (4)
  1. HUMIRA [Suspect]
     Indication: CROHN'S DISEASE
     Route: 058
     Dates: start: 20070301
  2. FLUOXETINE HYDROCHLORIDE [Suspect]
     Indication: ABNORMAL BEHAVIOUR
     Route: 048
  3. ENDOCORT [Concomitant]
     Indication: CROHN'S DISEASE
     Route: 048
  4. TEMAZEPAM [Concomitant]
     Indication: INSOMNIA
     Route: 048

REACTIONS (3)
  - AGITATION [None]
  - DEPRESSION [None]
  - WEIGHT INCREASED [None]
